FAERS Safety Report 6833461-9 (Version None)
Quarter: 2010Q3

REPORT INFORMATION
  Report Type: 
  Country: None (occurrence: None)
  Receive Date: 20100712
  Receipt Date: 20070326
  Transmission Date: 20110219
  Serious: No
  Sender: FDA-Public Use
  Company Number: US-PFIZER INC-2007024764

PATIENT
  Sex: Female
  Weight: 86.18 kg

DRUGS (1)
  1. CHANTIX [Suspect]
     Indication: SMOKING CESSATION THERAPY
     Route: 048
     Dates: start: 20070321

REACTIONS (10)
  - ABDOMINAL DISTENSION [None]
  - DECREASED APPETITE [None]
  - HEADACHE [None]
  - HEART RATE INCREASED [None]
  - NASAL OEDEMA [None]
  - NAUSEA [None]
  - OEDEMA PERIPHERAL [None]
  - PANIC REACTION [None]
  - SENSATION OF FOREIGN BODY [None]
  - WEIGHT DECREASED [None]
